FAERS Safety Report 6686432-X (Version None)
Quarter: 2010Q2

REPORT INFORMATION
  Report Type: 
  Country: None (occurrence: None)
  Receive Date: 20100419
  Receipt Date: 20100408
  Transmission Date: 20101027
  Serious: Yes (Hospitalization)
  Sender: FDA-Public Use
  Company Number: B0634929C

PATIENT
  Sex: Female

DRUGS (5)
  1. LAPATINIB [Suspect]
     Indication: BREAST CANCER
     Route: 048
     Dates: start: 20100114
  2. TAXOTERE [Suspect]
     Indication: BREAST CANCER
     Route: 048
     Dates: start: 20100114
  3. SEROPLEX [Concomitant]
     Indication: ANXIETY
     Route: 048
  4. NORDAZ [Concomitant]
     Indication: ANXIETY
  5. ZOLPIDEM [Concomitant]
     Indication: ANXIETY
     Route: 048

REACTIONS (2)
  - GENERAL PHYSICAL HEALTH DETERIORATION [None]
  - METASTASES TO CENTRAL NERVOUS SYSTEM [None]
